FAERS Safety Report 13240390 (Version 1)
Quarter: 2017Q1

REPORT INFORMATION
  Report Type: Spontaneous
  Country: US (occurrence: US)
  Receive Date: 20170216
  Receipt Date: 20170216
  Transmission Date: 20170428
  Serious: No
  Sender: FDA-Public Use
  Company Number: US-RELYPSA-RLY2016003418

PATIENT
  Age: 80 Year
  Sex: Male

DRUGS (11)
  1. VELTASSA [Suspect]
     Active Substance: PATIROMER
     Dosage: 8.4 G, QOD
  2. AMLODIPINE [Concomitant]
     Active Substance: AMLODIPINE BESYLATE
  3. FLOMAX [Concomitant]
     Active Substance: TAMSULOSIN HYDROCHLORIDE
  4. LOSARTAN. [Concomitant]
     Active Substance: LOSARTAN
  5. AMARYL [Concomitant]
     Active Substance: GLIMEPIRIDE
  6. FLUTICASONE. [Concomitant]
     Active Substance: FLUTICASONE
  7. COREG [Concomitant]
     Active Substance: CARVEDILOL
  8. PRAVASTATIN. [Concomitant]
     Active Substance: PRAVASTATIN
  9. VELTASSA [Suspect]
     Active Substance: PATIROMER
     Indication: PRODUCT USED FOR UNKNOWN INDICATION
     Dosage: 8.4 G, QOD
     Route: 065
  10. LASIX [Concomitant]
     Active Substance: FUROSEMIDE
  11. LEVOTHYROXINE. [Concomitant]
     Active Substance: LEVOTHYROXINE

REACTIONS (2)
  - Inappropriate schedule of drug administration [Not Recovered/Not Resolved]
  - Constipation [Recovered/Resolved]

NARRATIVE: CASE EVENT DATE: 201610
